FAERS Safety Report 15189572 (Version 1)
Quarter: 2018Q3

REPORT INFORMATION
  Report Type: Spontaneous
  Country: SK (occurrence: SK)
  Receive Date: 20180724
  Receipt Date: 20180724
  Transmission Date: 20181010
  Serious: Yes (Other)
  Sender: FDA-Public Use
  Company Number: SK-PFIZER INC-2018293093

PATIENT
  Age: 58 Year
  Sex: Female

DRUGS (5)
  1. ATORVASTATIN CALCIUM. [Suspect]
     Active Substance: ATORVASTATIN CALCIUM
     Indication: BLOOD CHOLESTEROL INCREASED
     Dosage: 10 MG, UNK
     Route: 065
  2. NEUROL [Concomitant]
     Dosage: 2X/DAY
  3. ZODAC [Concomitant]
     Active Substance: CETIRIZINE HYDROCHLORIDE
     Dosage: 1X/DAY
  4. FLAVOBION [Concomitant]
     Indication: LIVER FUNCTION TEST ABNORMAL
  5. ASCORUTIN [Concomitant]
     Active Substance: ASCORBIC ACID\RUTIN
     Indication: CONTUSION

REACTIONS (7)
  - Dyspnoea [Unknown]
  - Vertigo [Unknown]
  - Restlessness [Unknown]
  - Mood altered [Unknown]
  - Condition aggravated [Unknown]
  - Depressed mood [Unknown]
  - Asthma [Unknown]
